APPROVED DRUG PRODUCT: MECLOMEN
Active Ingredient: MECLOFENAMATE SODIUM
Strength: EQ 100MG BASE
Dosage Form/Route: CAPSULE;ORAL
Application: N018006 | Product #002
Applicant: PARKE DAVIS DIV WARNER LAMBERT CO
Approved: Approved Prior to Jan 1, 1982 | RLD: No | RS: No | Type: DISCN